FAERS Safety Report 9587062 (Version 2)
Quarter: 2013Q4

REPORT INFORMATION
  Report Type: Spontaneous
  Country: IT (occurrence: ES)
  Receive Date: 20131003
  Receipt Date: 20131024
  Transmission Date: 20140711
  Serious: Yes (Death, Hospitalization)
  Sender: FDA-Public Use
  Company Number: ES-FRI-1000049249

PATIENT
  Age: 79 Year
  Sex: Male

DRUGS (6)
  1. NEBIVOLOL [Suspect]
     Dosage: 10 MG
     Route: 048
     Dates: start: 200909, end: 20110220
  2. FUROSEMIDE [Suspect]
     Dosage: 20 MG
     Route: 048
     Dates: start: 20110104, end: 20110220
  3. ENALAPRIL [Suspect]
     Indication: HYPERTENSION
     Dosage: 10 MG
     Dates: start: 20110104, end: 20110131
  4. ALDACTONE [Suspect]
     Dosage: 25 MG
     Route: 048
     Dates: end: 20110202
  5. MOTILIUM [Concomitant]
     Dosage: 30 MG
     Route: 054
     Dates: start: 20110104, end: 20110131
  6. SINTROM [Concomitant]

REACTIONS (3)
  - Renal failure acute [Fatal]
  - Hyperkalaemia [Fatal]
  - Drug interaction [Fatal]
